FAERS Safety Report 8282325-5 (Version None)
Quarter: 2012Q2

REPORT INFORMATION
  Report Type: 
  Country: None (occurrence: None)
  Receive Date: 20120413
  Receipt Date: 20120413
  Transmission Date: 20120825
  Serious: Yes (Other)
  Sender: FDA-Public Use
  Company Number: None

PATIENT
  Age: 54 Year
  Sex: Female
  Weight: 65.77 kg

DRUGS (2)
  1. PRILOSEC OTC [Concomitant]
  2. PRILOSEC OTC [Suspect]
     Indication: DYSPEPSIA
     Dosage: 14 DAY COURSE
     Route: 048
     Dates: start: 20120224, end: 20120307

REACTIONS (10)
  - DYSPNOEA [None]
  - FATIGUE [None]
  - PALPITATIONS [None]
  - DYSPHAGIA [None]
  - HYPERSENSITIVITY [None]
  - DIZZINESS [None]
  - BLOOD PRESSURE DECREASED [None]
  - TREMOR [None]
  - FEELING ABNORMAL [None]
  - NAUSEA [None]
